FAERS Safety Report 19312457 (Version 2)
Quarter: 2021Q2

REPORT INFORMATION
  Report Type: Spontaneous
  Country: HU (occurrence: HU)
  Receive Date: 20210527
  Receipt Date: 20210610
  Transmission Date: 20210717
  Serious: Yes (Other)
  Sender: FDA-Public Use
  Company Number: HU-ROCHE-2836955

PATIENT
  Age: 46 Year
  Sex: Female

DRUGS (13)
  1. RIVOTRIL [Suspect]
     Active Substance: CLONAZEPAM
     Route: 065
     Dates: start: 20200825
  2. REAGILA [Suspect]
     Active Substance: CARIPRAZINE
     Indication: NEGATIVE SYMPTOMS IN SCHIZOPHRENIA
     Route: 065
     Dates: start: 20200515
  3. REAGILA [Suspect]
     Active Substance: CARIPRAZINE
     Indication: SCHIZOPHRENIA
     Route: 065
     Dates: start: 20200429
  4. TEGRETOL [Suspect]
     Active Substance: CARBAMAZEPINE
     Indication: SCHIZOAFFECTIVE DISORDER DEPRESSIVE TYPE
     Route: 065
  5. TRITTICO [Concomitant]
     Active Substance: TRAZODONE HYDROCHLORIDE
     Indication: PRODUCT USED FOR UNKNOWN INDICATION
     Dosage: ONE IN THE EVENING
     Dates: start: 20200512
  6. RIVOTRIL [Suspect]
     Active Substance: CLONAZEPAM
     Indication: ANXIETY
     Route: 065
     Dates: start: 20200721
  7. CITAPRAM [Concomitant]
     Active Substance: CITALOPRAM HYDROCHLORIDE
     Dates: start: 20200512, end: 202011
  8. RIVOTRIL [Suspect]
     Active Substance: CLONAZEPAM
     Route: 065
     Dates: start: 20191107
  9. RIVOTRIL [Suspect]
     Active Substance: CLONAZEPAM
     Route: 065
     Dates: start: 20200227
  10. REAGILA [Suspect]
     Active Substance: CARIPRAZINE
     Route: 065
     Dates: start: 20210428
  11. CITAPRAM [Concomitant]
     Active Substance: CITALOPRAM HYDROCHLORIDE
     Indication: ADJUSTMENT DISORDER
  12. REAGILA [Suspect]
     Active Substance: CARIPRAZINE
     Route: 065
     Dates: start: 20200616
  13. TEGRETOL [Suspect]
     Active Substance: CARBAMAZEPINE
     Route: 065
     Dates: start: 20210428

REACTIONS (3)
  - Negative symptoms in schizophrenia [Not Recovered/Not Resolved]
  - Epilepsy [Recovered/Resolved]
  - Therapeutic product effect decreased [Unknown]
